FAERS Safety Report 9012579 (Version 2)
Quarter: 2013Q1

REPORT INFORMATION
  Report Type: Spontaneous
  Country: US (occurrence: US)
  Receive Date: 20130114
  Receipt Date: 20130121
  Transmission Date: 20140127
  Serious: Yes (Other)
  Sender: FDA-Public Use
  Company Number: US-NAPPMUNDI-USA-2013-0097541

PATIENT
  Sex: Female

DRUGS (4)
  1. OXYCONTIN TABLETS [Suspect]
     Indication: SCOLIOSIS
     Dosage: UNK UNK, DAILY
     Route: 048
     Dates: start: 1998, end: 1998
  2. OXYCONTIN TABLETS [Suspect]
     Indication: PAIN
     Dosage: 1 TABLET, DAILY
     Route: 048
     Dates: start: 2000, end: 2000
  3. OXYCONTIN TABLETS [Suspect]
     Dosage: UNK
     Route: 048
     Dates: start: 2005, end: 2005
  4. PERCOCET                           /00867901/ [Concomitant]
     Indication: PAIN
     Dosage: 10/325MG FOUR TIMES A DAY
     Route: 048

REACTIONS (6)
  - Suicidal ideation [Recovered/Resolved]
  - Homicidal ideation [Recovered/Resolved]
  - Schizophrenia [Recovered/Resolved]
  - Panic attack [Recovered/Resolved]
  - Depression [Recovered/Resolved]
  - Nervousness [Unknown]
